FAERS Safety Report 8092245-7 (Version None)
Quarter: 2012Q1

REPORT INFORMATION
  Report Type: 
  Country: None (occurrence: None)
  Receive Date: 20120129
  Receipt Date: 20111103
  Transmission Date: 20120608
  Serious: No
  Sender: FDA-Public Use
  Company Number: US-ABBOTT-11P-163-0871681-00

PATIENT
  Sex: Female

DRUGS (5)
  1. HUMIRA [Suspect]
     Indication: RHEUMATOID ARTHRITIS
     Route: 058
     Dates: start: 20100501, end: 20101201
  2. ENBREL [Suspect]
     Indication: PRODUCT USED FOR UNKNOWN INDICATION
     Dates: start: 20110301
  3. HUMIRA [Suspect]
     Route: 058
     Dates: start: 20111001
  4. METHOTRAXATE [Concomitant]
     Indication: RHEUMATOID ARTHRITIS
     Dosage: 8 TABLETS ON SUNDAY ONLY
  5. PLAQUENIL [Concomitant]
     Indication: RHEUMATOID ARTHRITIS

REACTIONS (1)
  - ARTHRALGIA [None]
